FAERS Safety Report 10159327 (Version 1)
Quarter: 2014Q2

REPORT INFORMATION
  Report Type: Spontaneous
  Country: SE (occurrence: SE)
  Receive Date: 20140508
  Receipt Date: 20140508
  Transmission Date: 20141212
  Serious: Yes (Other)
  Sender: FDA-Public Use
  Company Number: SE-ROCHE-1398009

PATIENT
  Sex: 0

DRUGS (1)
  1. ROACTEMRA [Suspect]
     Indication: VASCULITIS
     Route: 042

REACTIONS (1)
  - Cerebrovascular accident [Unknown]
